FAERS Safety Report 18204389 (Version 1)
Quarter: 2020Q3

REPORT INFORMATION
  Report Type: Spontaneous
  Country: SG (occurrence: SG)
  Receive Date: 20200827
  Receipt Date: 20200827
  Transmission Date: 20201103
  Serious: Yes (Other)
  Sender: FDA-Public Use
  Company Number: SG-GILEAD-2020-0491938

PATIENT
  Age: 46 Year
  Sex: Male
  Weight: 80 kg

DRUGS (2)
  1. EPCLUSA [Suspect]
     Active Substance: SOFOSBUVIR\VELPATASVIR
     Indication: CHRONIC HEPATITIS C
     Dosage: 1 DOSAGE FORM, QD
     Route: 048
     Dates: start: 20190817, end: 20191109
  2. RIBAVIRIN. [Suspect]
     Active Substance: RIBAVIRIN
     Indication: CHRONIC HEPATITIS C
     Dosage: 400 MG, BID
     Route: 048
     Dates: start: 20190817, end: 20191109

REACTIONS (2)
  - Drug ineffective [Not Recovered/Not Resolved]
  - Liver transplant [Unknown]

NARRATIVE: CASE EVENT DATE: 202001
